FAERS Safety Report 8055162-4 (Version None)
Quarter: 2012Q1

REPORT INFORMATION
  Report Type: 
  Country: None (occurrence: None)
  Receive Date: 20120119
  Receipt Date: 20120110
  Transmission Date: 20120608
  Serious: Yes (Hospitalization)
  Sender: FDA-Public Use
  Company Number: CA-BRISTOL-MYERS SQUIBB COMPANY-16344194

PATIENT
  Sex: Female

DRUGS (2)
  1. FLU VACCINE [Suspect]
     Indication: IMMUNISATION
     Dates: start: 20111101
  2. ONGLYZA [Suspect]
     Route: 048
     Dates: start: 20111101, end: 20111101

REACTIONS (1)
  - ANAPHYLACTIC SHOCK [None]
